FAERS Safety Report 7641051-3 (Version None)
Quarter: 2011Q3

REPORT INFORMATION
  Report Type: 
  Country: None (occurrence: None)
  Receive Date: 20110728
  Receipt Date: 20110721
  Transmission Date: 20111222
  Serious: Yes (Hospitalization, Other)
  Sender: FDA-Public Use
  Company Number: US-ASTELLAS-2011US004135

PATIENT
  Age: 75 Year
  Sex: Female

DRUGS (1)
  1. LEXISCAN [Suspect]
     Indication: SCAN MYOCARDIAL PERFUSION
     Dosage: UNK
     Route: 042
     Dates: start: 20110714, end: 20110714

REACTIONS (5)
  - HYPERHIDROSIS [None]
  - CONVULSION [None]
  - CONFUSIONAL STATE [None]
  - NAUSEA [None]
  - LOSS OF CONSCIOUSNESS [None]
